APPROVED DRUG PRODUCT: ACARBOSE
Active Ingredient: ACARBOSE
Strength: 100MG
Dosage Form/Route: TABLET;ORAL
Application: A202271 | Product #003 | TE Code: AB
Applicant: AVET LIFESCIENCES LTD
Approved: Feb 7, 2012 | RLD: No | RS: No | Type: RX